FAERS Safety Report 8469234-3 (Version None)
Quarter: 2012Q2

REPORT INFORMATION
  Report Type: 
  Country: None (occurrence: None)
  Receive Date: 20120626
  Receipt Date: 20110427
  Transmission Date: 20120825
  Serious: Yes (Other)
  Sender: FDA-Public Use
  Company Number: US-ROCHE-773977

PATIENT
  Sex: Female

DRUGS (1)
  1. BONIVA [Suspect]
     Indication: PRODUCT USED FOR UNKNOWN INDICATION
     Dosage: 2-3 MONTHS
     Route: 048

REACTIONS (5)
  - FALL [None]
  - INFLUENZA LIKE ILLNESS [None]
  - BONE PAIN [None]
  - UPPER LIMB FRACTURE [None]
  - MYALGIA [None]
